FAERS Safety Report 4759867-X (Version None)
Quarter: 2005Q3

REPORT INFORMATION
  Report Type: 
  Country: None (occurrence: None)
  Receive Date: 20050831
  Receipt Date: 20050831
  Transmission Date: 20060218
  Serious: Yes (Hospitalization)
  Sender: FDA-Public Use
  Company Number: None

PATIENT
  Age: 78 Year
  Sex: Male
  Weight: 68.4932 kg

DRUGS (6)
  1. PACLITAXEL [Suspect]
     Indication: LUNG NEOPLASM MALIGNANT
     Dates: start: 20050819, end: 20050819
  2. HYTRIN [Concomitant]
  3. PRAVACHOL [Concomitant]
  4. NIASPAN [Concomitant]
  5. TIMOLOL MALEATE [Concomitant]
  6. MULTI-VITAMIN [Concomitant]

REACTIONS (8)
  - CHEST DISCOMFORT [None]
  - CONFUSIONAL STATE [None]
  - DISORIENTATION [None]
  - DYSPNOEA [None]
  - ERYTHEMA [None]
  - HYPERTENSION [None]
  - INFUSION RELATED REACTION [None]
  - MENTAL STATUS CHANGES [None]
